FAERS Safety Report 24367184 (Version 1)
Quarter: 2024Q3

REPORT INFORMATION
  Report Type: Spontaneous
  Country: US (occurrence: None)
  Receive Date: 20240926
  Receipt Date: 20240926
  Transmission Date: 20241017
  Serious: No
  Sender: ACS DOBFAR
  Company Number: US-ACS-20240356

PATIENT
  Age: 71 Year
  Sex: Male

DRUGS (3)
  1. CEFAZOLIN [Suspect]
     Active Substance: CEFAZOLIN
  2. DUPIXENT [Concomitant]
     Active Substance: DUPILUMAB
     Indication: Asthma
     Route: 058
     Dates: start: 20230421
  3. LEVALBUTEROL [Concomitant]
     Active Substance: LEVALBUTEROL
     Dosage: ()AS NECESSARY

REACTIONS (1)
  - Drug eruption [Unknown]

NARRATIVE: CASE EVENT DATE: 20240401
